FAERS Safety Report 25395662 (Version 5)
Quarter: 2025Q4

REPORT INFORMATION
  Report Type: Spontaneous
  Country: None (occurrence: GB)
  Receive Date: 20250604
  Receipt Date: 20251106
  Transmission Date: 20260117
  Serious: Yes (Hospitalization)
  Sender: ALNYLAM PHARMACEUTICALS
  Company Number: GB-ALNYLAM PHARMACEUTICALS, INC.-ALN-2025-003437

PATIENT
  Age: 18 Year
  Weight: 53.4 kg

DRUGS (11)
  1. GIVLAARI [Suspect]
     Active Substance: GIVOSIRAN SODIUM
     Indication: Porphyria acute
     Dosage: 136 MILLIGRAM, MONTHLY
  2. GIVLAARI [Suspect]
     Active Substance: GIVOSIRAN SODIUM
     Dosage: 136 MILLIGRAM, MONTHLY
  3. CODEINE [Concomitant]
     Active Substance: CODEINE
     Indication: Abdominal pain
     Dosage: 30 MILLIGRAM, PRN (UP TO ONE TABLET 4 TIMES DAILY)
  4. ACETAMINOPHEN [Concomitant]
     Active Substance: ACETAMINOPHEN
     Indication: Abdominal pain
     Dosage: 500 MILLIGRAM, PRN (UP TO 2 TABLETS EVERY 6 HRS)
  5. CYCLIZINE [Concomitant]
     Active Substance: CYCLIZINE
     Indication: Nausea
     Dosage: 50 MILLIGRAM, PRN (UP TO 1 TABLET 3 TIMES DAILY)
  6. CYCLIZINE [Concomitant]
     Active Substance: CYCLIZINE
     Indication: Vomiting
  7. FERROUS SULFATE [Concomitant]
     Active Substance: FERROUS SULFATE
     Indication: Iron deficiency anaemia
     Dosage: 200 MILLIGRAM, QD
  8. FERROUS SULFATE [Concomitant]
     Active Substance: FERROUS SULFATE
     Indication: Heavy menstrual bleeding
  9. VITAMIN B6 [Concomitant]
     Active Substance: PYRIDOXINE HYDROCHLORIDE
     Indication: Product used for unknown indication
     Dosage: UNK
     Route: 065
  10. ONDANSETRON [Concomitant]
     Active Substance: ONDANSETRON
     Indication: Nausea
     Dosage: UNK
     Route: 065
  11. ACETYLCYSTEINE [Concomitant]
     Active Substance: ACETYLCYSTEINE
     Indication: Liver injury
     Dosage: UNK
     Route: 065

REACTIONS (5)
  - Transaminases increased [Recovered/Resolved]
  - Laboratory test abnormal [Recovered/Resolved]
  - Nausea [Not Recovered/Not Resolved]
  - Abdominal pain [Not Recovered/Not Resolved]
  - Porphyria acute [Unknown]
